FAERS Safety Report 20836016 (Version 1)
Quarter: 2022Q2

REPORT INFORMATION
  Report Type: Spontaneous
  Country: GB (occurrence: GB)
  Receive Date: 20220516
  Receipt Date: 20220516
  Transmission Date: 20220721
  Serious: Yes (Death, Hospitalization, Other)
  Sender: FDA-Public Use
  Company Number: XI-BRISTOL-MYERS SQUIBB COMPANY-2022-037427

PATIENT
  Sex: Female

DRUGS (1)
  1. ELIQUIS [Suspect]
     Active Substance: APIXABAN
     Indication: Cerebrovascular accident prophylaxis
     Dosage: DOSE : UNAV.;     FREQ : UNAV.
     Route: 065

REACTIONS (2)
  - Cerebrovascular accident [Fatal]
  - Accident at home [Unknown]
